FAERS Safety Report 7357673-3 (Version None)
Quarter: 2011Q1

REPORT INFORMATION
  Report Type: 
  Country: None (occurrence: None)
  Receive Date: 20110307
  Receipt Date: 20100903
  Transmission Date: 20110831
  Serious: No
  Sender: FDA-Public Use
  Company Number: AEUSA201000325

PATIENT
  Age: 71 Year
  Sex: Male

DRUGS (1)
  1. PROLASTIN-C [Suspect]
     Indication: ALPHA-1 ANTI-TRYPSIN DEFICIENCY
     Dosage: 240 MG/KG, QM, IV
     Route: 042
     Dates: start: 20100707

REACTIONS (3)
  - RASH [None]
  - OEDEMA PERIPHERAL [None]
  - PRURITUS GENERALISED [None]
